FAERS Safety Report 6222765-9 (Version None)
Quarter: 2009Q2

REPORT INFORMATION
  Report Type: 
  Country: None (occurrence: None)
  Receive Date: 20090611
  Receipt Date: 20090603
  Transmission Date: 20091009
  Serious: Yes (Other)
  Sender: FDA-Public Use
  Company Number: A0788603A

PATIENT
  Age: 35 Year
  Sex: Male

DRUGS (10)
  1. ZIAGEN [Suspect]
     Indication: HIV INFECTION
     Dosage: 300MG VARIABLE DOSE
     Route: 048
     Dates: start: 20090519, end: 20090602
  2. LEXIVA [Suspect]
     Indication: HIV INFECTION
     Route: 048
  3. TRUVADA [Concomitant]
  4. ISENTRESS [Concomitant]
  5. LAMOTRIGINE [Concomitant]
  6. DIAZEPAM [Concomitant]
  7. ZOLOFT [Concomitant]
  8. PROMETHAZINE [Concomitant]
  9. ROPINIROLE [Concomitant]
  10. VALTREX [Concomitant]

REACTIONS (9)
  - DEPRESSION [None]
  - DISSOCIATION [None]
  - DYSPNOEA [None]
  - FATIGUE [None]
  - HYPOAESTHESIA [None]
  - MANIA [None]
  - NIGHTMARE [None]
  - OROPHARYNGEAL PAIN [None]
  - SLEEP DISORDER [None]
